FAERS Safety Report 18517565 (Version 1)
Quarter: 2020Q4

REPORT INFORMATION
  Report Type: Spontaneous
  Country: GB (occurrence: GB)
  Receive Date: 20201118
  Receipt Date: 20201118
  Transmission Date: 20210114
  Serious: Yes (Other)
  Sender: FDA-Public Use
  Company Number: GB-NOVOPROD-766401

PATIENT
  Age: 58 Year
  Sex: Male
  Weight: 111 kg

DRUGS (3)
  1. HUMULIN L [Concomitant]
     Active Substance: INSULIN HUMAN
     Dosage: UNK
     Route: 065
  2. NOVORAPID [Concomitant]
     Active Substance: INSULIN ASPART
     Dosage: UNK
     Route: 065
  3. OZEMPIC [Suspect]
     Active Substance: SEMAGLUTIDE
     Indication: TYPE 2 DIABETES MELLITUS
     Dosage: 0.25 MG, QW
     Route: 058
     Dates: start: 20200901

REACTIONS (4)
  - Condition aggravated [Unknown]
  - Retinopathy [Not Recovered/Not Resolved]
  - Vitreoretinal traction syndrome [Unknown]
  - Macular fibrosis [Unknown]

NARRATIVE: CASE EVENT DATE: 20200901
